FAERS Safety Report 16526838 (Version 2)
Quarter: 2019Q3

REPORT INFORMATION
  Report Type: Spontaneous
  Country: US (occurrence: US)
  Receive Date: 20190703
  Receipt Date: 20190823
  Transmission Date: 20191004
  Serious: Yes (Other)
  Sender: FDA-Public Use
  Company Number: US-LUNDBECK-DKLU3000361

PATIENT
  Age: 18 Year
  Sex: Female

DRUGS (1)
  1. NORTHERA [Suspect]
     Active Substance: DROXIDOPA
     Indication: AUTONOMIC NEUROPATHY
     Route: 048
     Dates: start: 20170302

REACTIONS (1)
  - Foot operation [Unknown]

NARRATIVE: CASE EVENT DATE: 201903
